FAERS Safety Report 4698068-0 (Version None)
Quarter: 2005Q2

REPORT INFORMATION
  Report Type: 
  Country: None (occurrence: None)
  Receive Date: 20050621
  Receipt Date: 20050606
  Transmission Date: 20051028
  Serious: Yes (Other)
  Sender: FDA-Public Use
  Company Number: MAG-2005-0000358

PATIENT
  Age: 67 Year
  Sex: Female

DRUGS (2)
  1. POVIDONE IODINE [Suspect]
     Indication: WOUND
     Dosage: 1 APLIC, DAILY, TOPICAL
     Route: 061
     Dates: start: 20050307, end: 20050312
  2. EUTIROX (LEVOTHYROXINE) [Concomitant]

REACTIONS (3)
  - DERMATITIS CONTACT [None]
  - SKIN TEST POSITIVE [None]
  - WOUND COMPLICATION [None]
